FAERS Safety Report 8859792 (Version 1)
Quarter: 2012Q4

REPORT INFORMATION
  Report Type: 
  Country: US (occurrence: US)
  Receive Date: 20121025
  Receipt Date: 20121025
  Transmission Date: 20130627
  Serious: No
  Sender: FDA-Public Use
  Company Number: US-ABBOTT-12P-163-0974164-00

PATIENT
  Age: 40 Year
  Sex: Female
  Weight: 54.48 kg

DRUGS (5)
  1. LUPRON [Suspect]
     Indication: IN VITRO FERTILISATION
     Route: 065
  2. BRAVELLE [Suspect]
     Indication: IN VITRO FERTILISATION
     Route: 065
     Dates: start: 20120803, end: 20120805
  3. BRAVELLE [Suspect]
     Route: 065
     Dates: start: 20120806
  4. MENOPUR [Suspect]
     Indication: IN VITRO FERTILISATION
     Route: 065
     Dates: start: 20120803, end: 20120805
  5. MENOPUR [Suspect]
     Route: 065
     Dates: start: 20120806

REACTIONS (1)
  - No therapeutic response [Unknown]
